FAERS Safety Report 7889257-2 (Version None)
Quarter: 2011Q4

REPORT INFORMATION
  Report Type: 
  Country: None (occurrence: None)
  Receive Date: 20111101
  Receipt Date: 20111019
  Transmission Date: 20120403
  Serious: Yes (Other)
  Sender: FDA-Public Use
  Company Number: AUR-APL-2011-05183

PATIENT
  Age: 53 Year
  Sex: Female
  Weight: 97.51 kg

DRUGS (12)
  1. LISINOPRIL [Suspect]
     Indication: PRODUCT USED FOR UNKNOWN INDICATION
     Dosage: ORAL
     Route: 048
  2. MONOPRIL [Suspect]
     Indication: PRODUCT USED FOR UNKNOWN INDICATION
  3. VALIUM [Concomitant]
  4. ATENOLOL [Suspect]
     Indication: PRODUCT USED FOR UNKNOWN INDICATION
     Dosage: ORAL
     Route: 048
  5. LYRICA [Suspect]
     Indication: NEUROPATHY PERIPHERAL
     Dosage: 300 MG (150 MG, 2 IN 1 D), ORAL
     Route: 048
     Dates: start: 20100101, end: 20100101
  6. ATACAND [Suspect]
     Indication: PRODUCT USED FOR UNKNOWN INDICATION
     Dosage: ORAL
     Route: 048
  7. METFORMIN HCL [Concomitant]
  8. HYDROCHLOROTHIAZIDE [Concomitant]
  9. PERCOCET [Concomitant]
  10. SOMA [Concomitant]
  11. CYMBALTA [Concomitant]
  12. POTASSIUM CHLORIDE [Concomitant]

REACTIONS (12)
  - PAIN [None]
  - RENAL IMPAIRMENT [None]
  - ROAD TRAFFIC ACCIDENT [None]
  - DRUG EFFECT DECREASED [None]
  - BLOOD CHOLESTEROL INCREASED [None]
  - BACK DISORDER [None]
  - FIBROMYALGIA [None]
  - DISEASE RECURRENCE [None]
  - MENTAL IMPAIRMENT [None]
  - THERAPY CESSATION [None]
  - NEURALGIA [None]
  - NEUROPATHY PERIPHERAL [None]
